FAERS Safety Report 5129543-2 (Version None)
Quarter: 2006Q4

REPORT INFORMATION
  Report Type: 
  Country: None (occurrence: None)
  Receive Date: 20061018
  Receipt Date: 20061011
  Transmission Date: 20070319
  Serious: Yes (Hospitalization)
  Sender: FDA-Public Use
  Company Number: IT-BAYER-200614556GDS

PATIENT
  Age: 69 Year
  Sex: Male
  Weight: 75 kg

DRUGS (7)
  1. SORAFENIB [Suspect]
     Indication: METASTATIC RENAL CELL CARCINOMA
     Route: 048
     Dates: start: 20060804, end: 20060828
  2. GEMCITABINE [Suspect]
     Indication: METASTATIC RENAL CELL CARCINOMA
     Route: 065
  3. OMNIC (TAMSULOSIN) [Concomitant]
     Indication: BENIGN PROSTATIC HYPERPLASIA
     Route: 048
  4. LASIX [Concomitant]
     Indication: HYPERTENSION
     Route: 048
  5. TRANEX (TRANEXAMIC ACID) [Concomitant]
     Indication: HAEMOPTYSIS
     Route: 048
     Dates: start: 20060707
  6. DELTACORTENE (PREDNISONE) [Concomitant]
     Indication: PAIN
     Route: 048
     Dates: start: 20060707
  7. ACTRAPID (INSULINE) [Concomitant]
     Indication: DIABETES MELLITUS
     Route: 058

REACTIONS (2)
  - DISEASE PROGRESSION [None]
  - METASTATIC RENAL CELL CARCINOMA [None]
